FAERS Safety Report 24006802 (Version 1)
Quarter: 2024Q2

REPORT INFORMATION
  Report Type: Spontaneous
  Country: US (occurrence: None)
  Receive Date: 20240624
  Receipt Date: 20240624
  Transmission Date: 20240716
  Serious: Yes (Hospitalization)
  Sender: FDA-Public Use
  Company Number: None

PATIENT
  Age: 74 Year
  Sex: Male
  Weight: 101 kg

DRUGS (1)
  1. VANCOMYCIN HYDROCHLORIDE [Suspect]
     Active Substance: VANCOMYCIN HYDROCHLORIDE
     Indication: Drug therapy
     Dosage: FREQUENCY : DAILY;?
     Route: 042
     Dates: start: 20221031, end: 20221031

REACTIONS (11)
  - Cardiac arrest [None]
  - Presyncope [None]
  - Urinary tract infection [None]
  - Enterococcal infection [None]
  - Hydronephrosis [None]
  - Pleural effusion [None]
  - Infusion related reaction [None]
  - Oxygen saturation decreased [None]
  - Dyspnoea [None]
  - Hypotension [None]
  - Sepsis [None]

NARRATIVE: CASE EVENT DATE: 20221031
